FAERS Safety Report 8572381-9 (Version None)
Quarter: 2012Q3

REPORT INFORMATION
  Report Type: 
  Country: None (occurrence: None)
  Receive Date: 20120806
  Receipt Date: 20120727
  Transmission Date: 20120928
  Serious: Yes (Hospitalization)
  Sender: FDA-Public Use
  Company Number: JP-JNJFOC-20120101969

PATIENT
  Sex: Female
  Weight: 58 kg

DRUGS (17)
  1. TACROLIMUS [Concomitant]
     Route: 048
     Dates: start: 20111209
  2. SIMPONI [Suspect]
     Indication: RHEUMATOID ARTHRITIS
     Route: 058
     Dates: start: 20111124
  3. PREDNISOLONE [Concomitant]
     Route: 048
     Dates: start: 20100401, end: 20100401
  4. TACROLIMUS [Concomitant]
     Route: 048
     Dates: start: 20111124, end: 20111208
  5. PREDNISOLONE [Concomitant]
     Route: 048
     Dates: start: 20101021, end: 20111101
  6. PREDNISOLONE [Concomitant]
     Route: 048
     Dates: start: 20111124
  7. PREDNISOLONE [Concomitant]
     Route: 048
     Dates: start: 20111101
  8. METHOTREXATE [Concomitant]
     Indication: RHEUMATOID ARTHRITIS
     Route: 048
     Dates: start: 20100401, end: 20100401
  9. CELECOXIB [Concomitant]
     Indication: RHEUMATOID ARTHRITIS
  10. FOLIC ACID [Concomitant]
     Indication: PROPHYLAXIS
     Route: 048
  11. TACROLIMUS [Concomitant]
     Indication: RHEUMATOID ARTHRITIS
     Route: 048
  12. PREDNISOLONE [Concomitant]
     Route: 048
     Dates: start: 20100501, end: 20100729
  13. METHOTREXATE [Concomitant]
     Route: 048
     Dates: start: 20100501, end: 20100729
  14. METHOTREXATE [Concomitant]
     Route: 048
     Dates: start: 20100730
  15. FAMOTIDINE [Concomitant]
     Indication: PROPHYLAXIS
     Route: 048
  16. PREDNISOLONE [Concomitant]
     Indication: RHEUMATOID ARTHRITIS
     Route: 048
     Dates: start: 20100730, end: 20101020
  17. PREDNISOLONE [Concomitant]
     Route: 048
     Dates: start: 20101118, end: 20111123

REACTIONS (3)
  - PULPITIS DENTAL [None]
  - DIARRHOEA [None]
  - VOMITING [None]
